FAERS Safety Report 23198850 (Version 1)
Quarter: 2023Q4

REPORT INFORMATION
  Report Type: Spontaneous
  Country: CN (occurrence: CN)
  Receive Date: 20231117
  Receipt Date: 20231117
  Transmission Date: 20240110
  Serious: Yes (Hospitalization)
  Sender: FDA-Public Use
  Company Number: CN-Merck Healthcare KGaA-2023487128

PATIENT
  Age: 55 Year
  Sex: Female

DRUGS (4)
  1. ERBITUX [Suspect]
     Active Substance: CETUXIMAB
     Indication: Tongue neoplasm malignant stage unspecified
     Dosage: 600 MG, UNK
     Route: 041
     Dates: start: 20230313
  2. ERBITUX [Suspect]
     Active Substance: CETUXIMAB
     Dosage: 400 MG, UNK
     Route: 041
     Dates: start: 20230327
  3. GEMCITABINE HYDROCHLORIDE [Suspect]
     Active Substance: GEMCITABINE HYDROCHLORIDE
     Indication: Tongue neoplasm malignant stage unspecified
     Dosage: 150 MG/M2, UNK
     Route: 041
     Dates: start: 20230314, end: 20230324
  4. NEDAPLATIN [Suspect]
     Active Substance: NEDAPLATIN
     Indication: Tongue neoplasm malignant stage unspecified
     Dosage: 120 MG/M2, UNK
     Route: 041
     Dates: start: 20230315

REACTIONS (1)
  - Myelosuppression [Unknown]

NARRATIVE: CASE EVENT DATE: 20230327
